FAERS Safety Report 13129067 (Version 1)
Quarter: 2017Q1

REPORT INFORMATION
  Report Type: Spontaneous
  Country: US (occurrence: US)
  Receive Date: 20170117
  Receipt Date: 20170117
  Transmission Date: 20170428
  Serious: Yes (Hospitalization)
  Sender: FDA-Public Use
  Company Number: None

PATIENT
  Age: 52 Year
  Sex: Female
  Weight: 61.2 kg

DRUGS (11)
  1. PROCHLORPERAZINE. [Concomitant]
     Active Substance: PROCHLORPERAZINE
  2. DECADRON [Concomitant]
     Active Substance: DEXAMETHASONE
  3. LOVENOX [Concomitant]
     Active Substance: ENOXAPARIN SODIUM
  4. KEPPRA [Concomitant]
     Active Substance: LEVETIRACETAM
  5. LEVOTHYROXINE. [Concomitant]
     Active Substance: LEVOTHYROXINE
  6. BACTRIM [Concomitant]
     Active Substance: SULFAMETHOXAZOLE\TRIMETHOPRIM
  7. ATIVAN [Concomitant]
     Active Substance: LORAZEPAM
  8. ONDANSETRON [Concomitant]
     Active Substance: ONDANSETRON
  9. TEMAZEPAM. [Concomitant]
     Active Substance: TEMAZEPAM
  10. PEMBROLIZUMAB. [Suspect]
     Active Substance: PEMBROLIZUMAB
  11. COLACE [Concomitant]
     Active Substance: DOCUSATE SODIUM

REACTIONS (17)
  - Confusional state [None]
  - Neoplasm [None]
  - Neck pain [None]
  - Headache [None]
  - Seizure [None]
  - Aphasia [None]
  - Condition aggravated [None]
  - Asthenia [None]
  - Excessive eye blinking [None]
  - Somnolence [None]
  - Fatigue [None]
  - Brain oedema [None]
  - Nuclear magnetic resonance imaging abnormal [None]
  - Hemiparesis [None]
  - Drug dose omission [None]
  - Disease progression [None]
  - Abasia [None]

NARRATIVE: CASE EVENT DATE: 20170114
